FAERS Safety Report 19619748 (Version 1)
Quarter: 2021Q3

REPORT INFORMATION
  Report Type: Spontaneous
  Country: US (occurrence: US)
  Receive Date: 20210728
  Receipt Date: 20210728
  Transmission Date: 20211014
  Serious: No
  Sender: FDA-Public Use
  Company Number: US-ROCHE-2749601

PATIENT
  Age: 62 Year
  Sex: Male

DRUGS (2)
  1. XELODA [Suspect]
     Active Substance: CAPECITABINE
     Indication: CARCINOID TUMOUR
     Route: 048
     Dates: start: 202101
  2. TEMODAR [Concomitant]
     Active Substance: TEMOZOLOMIDE
     Dosage: XELODA WILL BE USED FOR 14 DAYS IN COMBINATION WITH TEMODAR ON DAYS 10?14 IN 28 DAY CYCLES.

REACTIONS (3)
  - Intentional product use issue [Unknown]
  - Off label use [Unknown]
  - No adverse event [Unknown]

NARRATIVE: CASE EVENT DATE: 20210113
